FAERS Safety Report 9549282 (Version 1)
Quarter: 2013Q2

REPORT INFORMATION
  Report Type: Spontaneous
  Country: US (occurrence: None)
  Receive Date: 20130627
  Receipt Date: 20130627
  Transmission Date: 20140414
  Serious: No
  Sender: FDA-Public Use
  Company Number: 1000043931

PATIENT
  Age: 74 Year
  Sex: Male

DRUGS (11)
  1. LINZESS [Suspect]
     Indication: CONSTIPATION
     Dosage: 145 MCG (145 MCG, 1 IN 1 D), ORAL
     Route: 048
     Dates: start: 20130314
  2. LASIX (FUROSEMIDE) (FUROSEMIDE) [Concomitant]
  3. LEVOTHYROXINE (LEVOTHYROXINE) (LEVOTHYROXINE) [Concomitant]
  4. FINASTERIDE (FINASTERIDE0 (FINASTERIDE) [Concomitant]
  5. OXYCODONE (OXYCODONE) (OXYCODONE) [Concomitant]
  6. POTASSIUM (POTASSIUM) (POTASSIUM) [Concomitant]
  7. DOXYCYCLINE (DOXYCYCLINE) (DOXYCYCLINE) [Concomitant]
  8. IBUPROFEN (IBUPROFEN) (IBUPROFEN) [Concomitant]
  9. VITAMIN B COMPLEX (VITAMIN B COMPLEX) (VITAMIN B COMPLEX) [Concomitant]
  10. MVI (VITAMINS NOS) (VITAMINS NOS) [Concomitant]
  11. ALBUTEROL (ALBUTEROL) (ALBUTEROL) [Concomitant]

REACTIONS (2)
  - Diarrhoea [None]
  - Drug ineffective [None]
